FAERS Safety Report 12507985 (Version 1)
Quarter: 2016Q2

REPORT INFORMATION
  Report Type: Spontaneous
  Country: PT (occurrence: PT)
  Receive Date: 20160629
  Receipt Date: 20160629
  Transmission Date: 20160815
  Serious: Yes (Hospitalization, Other)
  Sender: FDA-Public Use
  Company Number: PT-APOTEX-2016AP009492

PATIENT
  Age: 41 Year
  Sex: Male

DRUGS (1)
  1. OLANZAPINE APOTEX [Suspect]
     Active Substance: OLANZAPINE
     Indication: PSYCHOTIC DISORDER
     Dosage: 2.5 MG, QD
     Route: 065

REACTIONS (2)
  - Neuroleptic malignant syndrome [Unknown]
  - Catatonia [Recovered/Resolved]
